FAERS Safety Report 9352901 (Version 3)
Quarter: 2013Q3

REPORT INFORMATION
  Report Type: Spontaneous
  Country: JP (occurrence: JP)
  Receive Date: 20130618
  Receipt Date: 20130701
  Transmission Date: 20140515
  Serious: Yes (Other)
  Sender: FDA-Public Use
  Company Number: JP-JNJFOC-20130604684

PATIENT
  Age: 5 Decade
  Sex: Female

DRUGS (1)
  1. DUROTEP [Suspect]
     Indication: PAIN
     Dosage: 25 UG/HR + 25 UG/HR = 50  UG/HR
     Route: 062
     Dates: start: 2011

REACTIONS (4)
  - Drug withdrawal syndrome [Recovered/Resolved]
  - Impulsive behaviour [Recovered/Resolved]
  - Wrong technique in drug usage process [Recovered/Resolved]
  - Drug effect delayed [Unknown]
